FAERS Safety Report 8000313-0 (Version None)
Quarter: 2011Q4

REPORT INFORMATION
  Report Type: 
  Country: None (occurrence: None)
  Receive Date: 20111123
  Receipt Date: 20110822
  Transmission Date: 20120403
  Serious: Yes (Hospitalization)
  Sender: FDA-Public Use
  Company Number: 332112

PATIENT
  Age: 61 Year
  Sex: Female
  Weight: 74.8 kg

DRUGS (4)
  1. ULTRAM [Concomitant]
  2. LOSARTAN POTASSIUM [Concomitant]
  3. TRILIPIX [Concomitant]
  4. VICTOZA [Suspect]
     Indication: DIABETES MELLITUS
     Dosage: 1.2 MG, QD, SUBCUTANEOUS
     Route: 058
     Dates: start: 20110607, end: 20110718

REACTIONS (1)
  - PANCREATITIS ACUTE [None]
